FAERS Safety Report 4276606-X (Version None)
Quarter: 2004Q1

REPORT INFORMATION
  Report Type: 
  Country: None (occurrence: None)
  Receive Date: 20040120
  Receipt Date: 20040108
  Transmission Date: 20041129
  Serious: Yes (Other)
  Sender: FDA-Public Use
  Company Number: US-JNJFOC-20040101720

PATIENT
  Age: 26 Year
  Sex: Female
  Weight: 58.9676 kg

DRUGS (3)
  1. ORTHO EVRA [Suspect]
     Indication: CONTRACEPTION
     Dosage: 1 DOSE9S), 3 IN 4 WEEK, TRANSDERMAL
     Route: 062
     Dates: start: 20030801
  2. MULTIVITAMIN(MULTIVITAMINS [Concomitant]
  3. FLAXSEED (LINSEED OIL) [Concomitant]

REACTIONS (2)
  - APPLICATION SITE DERMATITIS [None]
  - OVARIAN CYST [None]
